FAERS Safety Report 7371758-7 (Version None)
Quarter: 2011Q1

REPORT INFORMATION
  Report Type: 
  Country: None (occurrence: None)
  Receive Date: 20110324
  Receipt Date: 20110310
  Transmission Date: 20110831
  Serious: Yes (Other)
  Sender: FDA-Public Use
  Company Number: PHHY2011BR20165

PATIENT
  Sex: Female

DRUGS (4)
  1. DIOVAN [Suspect]
     Dosage: UNK
     Dates: start: 20110202
  2. MONOCORDIL [Suspect]
     Dosage: 40 MG, UNK
  3. AMLODIPINE [Concomitant]
  4. VASOPRIL [Concomitant]

REACTIONS (9)
  - INFARCTION [None]
  - DIABETES MELLITUS INADEQUATE CONTROL [None]
  - VEIN DISORDER [None]
  - ASTHMA [None]
  - BLOOD PRESSURE INCREASED [None]
  - SWELLING [None]
  - ANGINA PECTORIS [None]
  - ACUTE PULMONARY OEDEMA [None]
  - OEDEMA [None]
